FAERS Safety Report 8924657 (Version 1)
Quarter: 2012Q4

REPORT INFORMATION
  Report Type: 
  Country: US (occurrence: US)
  Receive Date: 20121126
  Receipt Date: 20121126
  Transmission Date: 20130627
  Serious: No
  Sender: FDA-Public Use
  Company Number: US-BRISTOL-MYERS SQUIBB COMPANY-17031295

PATIENT
  Sex: Female

DRUGS (1)
  1. KOMBIGLYZE XR [Suspect]
     Dosage: 1 df:5/1000 units NOS
     Route: 048

REACTIONS (3)
  - Dizziness [Unknown]
  - Chest pain [Unknown]
  - Pain in extremity [Unknown]
